FAERS Safety Report 5931469-9 (Version None)
Quarter: 2008Q4

REPORT INFORMATION
  Report Type: 
  Country: None (occurrence: None)
  Receive Date: 20081027
  Receipt Date: 20081016
  Transmission Date: 20090506
  Serious: Yes (Other)
  Sender: FDA-Public Use
  Company Number: US-JNJFOC-20081004352

PATIENT
  Age: 69 Year
  Sex: Female
  Weight: 48.08 kg

DRUGS (2)
  1. TYLENOL (CAPLET) [Suspect]
     Route: 048
  2. TYLENOL (CAPLET) [Suspect]
     Indication: BACK INJURY
     Dosage: 1/2 CAPLET, TWICE, ORAL
     Route: 048

REACTIONS (2)
  - BLOOD URINE PRESENT [None]
  - WRONG TECHNIQUE IN DRUG USAGE PROCESS [None]
